FAERS Safety Report 7755388-0 (Version None)
Quarter: 2011Q3

REPORT INFORMATION
  Report Type: 
  Country: None (occurrence: None)
  Receive Date: 20110914
  Receipt Date: 20110830
  Transmission Date: 20111222
  Serious: Yes (Life-Threatening, Hospitalization, Other)
  Sender: FDA-Public Use
  Company Number: AUR-APL-2009-00929

PATIENT
  Age: 39 Year
  Sex: Male

DRUGS (9)
  1. OMEPRAZOLE [Suspect]
     Indication: PRODUCT USED FOR UNKNOWN INDICATION
     Dosage: ORAL
     Route: 048
     Dates: start: 20090217
  2. SENNA (SENNA ALEXANDRINA) [Concomitant]
  3. METFORMIN HCL [Suspect]
     Indication: TYPE 2 DIABETES MELLITUS
     Dosage: (3 IN 1 D), ORAL
     Route: 048
     Dates: start: 20090217
  4. CLOZARIL [Suspect]
     Indication: SCHIZOPHRENIA
     Dosage: (1 IN 1 D), ORAL
     Route: 048
     Dates: start: 20031202
  5. CLOMIPRAMINE HCL [Suspect]
     Indication: ANXIETY
     Dosage: (1 IN 1 D), ORAL
     Route: 048
     Dates: start: 20090217
  6. HYOSCINE HBR HYT [Suspect]
     Indication: PRODUCT USED FOR UNKNOWN INDICATION
     Dosage: ORAL
     Route: 048
     Dates: start: 20090217
  7. SIMVASTATIN [Suspect]
     Indication: BLOOD CHOLESTEROL INCREASED
     Dosage: ORAL
     Route: 048
     Dates: start: 20090217
  8. THIAMIN CHLORIDE TAB [Concomitant]
  9. LISINOPRIL [Suspect]
     Indication: HYPERTENSION
     Dosage: ( 1 IN 1 D), ORAL
     Route: 048
     Dates: start: 20090217

REACTIONS (2)
  - MULTIPLE DRUG OVERDOSE [None]
  - AGITATION [None]
